FAERS Safety Report 8647746 (Version 2)
Quarter: 2012Q4

REPORT INFORMATION
  Report Type: Spontaneous
  Country: US (occurrence: None)
  Receive Date: 20120621
  Receipt Date: 20121004
  Transmission Date: 20130627
  Serious: Yes (Death)
  Sender: FDA-Public Use
  Company Number: ADR-2012-01136

PATIENT
  Sex: Male
  Weight: 49.9 kg

DRUGS (2)
  1. BACLOFEN INTRATHECAL [Suspect]
     Indication: PAIN
  2. BACLOFEN INTRATHECAL [Suspect]
     Indication: SPINAL CORD INJURY

REACTIONS (2)
  - Device connection issue [None]
  - Device power source issue [None]
